FAERS Safety Report 15061642 (Version 3)
Quarter: 2018Q3

REPORT INFORMATION
  Report Type: Spontaneous
  Country: US (occurrence: US)
  Receive Date: 20180625
  Receipt Date: 20180801
  Transmission Date: 20181010
  Serious: No
  Sender: FDA-Public Use
  Company Number: PHEH2018US025151

PATIENT

DRUGS (1)
  1. SANDOSTATIN LAR DEPOT [Suspect]
     Active Substance: OCTREOTIDE ACETATE
     Indication: CARCINOID SYNDROME
     Dosage: UNK UNK, QMO
     Route: 030
     Dates: start: 20180607

REACTIONS (1)
  - Needle issue [Recovered/Resolved]

NARRATIVE: CASE EVENT DATE: 20180607
